FAERS Safety Report 4724547-3 (Version None)
Quarter: 2005Q3

REPORT INFORMATION
  Report Type: 
  Country: None (occurrence: None)
  Receive Date: 20050719
  Receipt Date: 20050719
  Transmission Date: 20060218
  Serious: Yes (Other)
  Sender: FDA-Public Use
  Company Number: None

PATIENT
  Age: 83 Year
  Sex: Female
  Weight: 44.4525 kg

DRUGS (1)
  1. ZOMETA [Suspect]
     Dosage: 4 MG IV
     Route: 042
     Dates: start: 20050628

REACTIONS (4)
  - BACK PAIN [None]
  - ERYTHEMA [None]
  - OEDEMA PERIPHERAL [None]
  - PAIN IN EXTREMITY [None]
